FAERS Safety Report 5370725-2 (Version None)
Quarter: 2007Q2

REPORT INFORMATION
  Report Type: 
  Country: None (occurrence: None)
  Receive Date: 20070626
  Receipt Date: 20070430
  Transmission Date: 20071010
  Serious: Yes (Other)
  Sender: FDA-Public Use
  Company Number: US-PURDUE-USA_2007_0027692

PATIENT
  Sex: Female
  Weight: 61 kg

DRUGS (1)
  1. OXYCONTIN [Suspect]
     Indication: BLADDER DISORDER
     Dosage: 90 MG, TID
     Dates: start: 19920101

REACTIONS (6)
  - ANGER [None]
  - BLADDER DISORDER [None]
  - HALLUCINATION, VISUAL [None]
  - LOSS OF CONSCIOUSNESS [None]
  - MALAISE [None]
  - THINKING ABNORMAL [None]
